FAERS Safety Report 6626603-1 (Version None)
Quarter: 2010Q1

REPORT INFORMATION
  Report Type: 
  Country: None (occurrence: None)
  Receive Date: 20100309
  Receipt Date: 20100309
  Transmission Date: 20100710
  Serious: Yes (Life-Threatening)
  Sender: FDA-Public Use
  Company Number: None

PATIENT
  Age: 75 Year
  Sex: Male
  Weight: 66.2252 kg

DRUGS (1)
  1. EFFIENT [Suspect]
     Dosage: ONE TABLET DAILY PO
     Route: 048
     Dates: start: 20091115, end: 20100126

REACTIONS (4)
  - ARTHRALGIA [None]
  - EAR HAEMORRHAGE [None]
  - EPISTAXIS [None]
  - FAECES DISCOLOURED [None]
